FAERS Safety Report 9171560 (Version 2)
Quarter: 2013Q1

REPORT INFORMATION
  Report Type: Spontaneous
  Country: US (occurrence: None)
  Receive Date: 20130131
  Receipt Date: 20130208
  Transmission Date: 20140127
  Serious: Yes (Death)
  Sender: FDA-Public Use
  Company Number: 2013034553

PATIENT
  Age: 16 Year
  Sex: Male

DRUGS (1)
  1. BERINERT [Suspect]
     Indication: HEREDITARY ANGIOEDEMA
     Dosage: FIRST DOSE INTRAVENOUS (NOT OTHERWISE SPECIFIED)
     Dates: start: 201107

REACTIONS (3)
  - Swelling [None]
  - Cerebrovascular accident [None]
  - Circulatory collapse [None]
